FAERS Safety Report 8270475-9 (Version None)
Quarter: 2012Q2

REPORT INFORMATION
  Report Type: 
  Country: None (occurrence: None)
  Receive Date: 20120410
  Receipt Date: 20120405
  Transmission Date: 20120825
  Serious: Yes (Other)
  Sender: FDA-Public Use
  Company Number: US-BAYER-2012-033951

PATIENT
  Age: 54 Year
  Sex: Female

DRUGS (1)
  1. EOVIST [Suspect]
     Indication: NUCLEAR MAGNETIC RESONANCE IMAGING
     Dosage: 10 ML, ONCE
     Dates: start: 20120328, end: 20120328

REACTIONS (7)
  - RASH MACULAR [None]
  - CHEST DISCOMFORT [None]
  - NAUSEA [None]
  - INJECTION SITE HAEMATOMA [None]
  - INJECTION SITE PRURITUS [None]
  - DIAPHRAGMATIC DISORDER [None]
  - DYSKINESIA [None]
